FAERS Safety Report 9618690 (Version 2)
Quarter: 2013Q4

REPORT INFORMATION
  Report Type: Spontaneous
  Country: US (occurrence: US)
  Receive Date: 20131014
  Receipt Date: 20131203
  Transmission Date: 20140711
  Serious: Yes (Death)
  Sender: FDA-Public Use
  Company Number: US-TEVA-436876USA

PATIENT
  Sex: Male

DRUGS (1)
  1. ACTIQ [Suspect]

REACTIONS (2)
  - Death [Fatal]
  - Treatment noncompliance [Unknown]
